FAERS Safety Report 25794339 (Version 1)
Quarter: 2025Q3

REPORT INFORMATION
  Report Type: Report from Study
  Country: EU (occurrence: EU)
  Receive Date: 20250912
  Receipt Date: 20250912
  Transmission Date: 20251020
  Serious: Yes (Other)
  Sender: ABBVIE
  Company Number: EU-JNJFOC-20250911991

PATIENT
  Age: 77 Year
  Sex: Male

DRUGS (1)
  1. IBRUTINIB [Suspect]
     Active Substance: IBRUTINIB
     Indication: Lymphocytic lymphoma
     Dosage: 280 MG / ONCE A DAY
     Route: 048
     Dates: start: 20231218, end: 20250602

REACTIONS (4)
  - Renal impairment [Not Recovered/Not Resolved]
  - Infection [Recovered/Resolved]
  - Ecchymosis [Not Recovered/Not Resolved]
  - Cataract [Recovered/Resolved]

NARRATIVE: CASE EVENT DATE: 20240603
